FAERS Safety Report 19605654 (Version 1)
Quarter: 2021Q3

REPORT INFORMATION
  Report Type: Spontaneous
  Country: US (occurrence: US)
  Receive Date: 20210723
  Receipt Date: 20210723
  Transmission Date: 20211014
  Serious: Yes (Death, Other)
  Sender: FDA-Public Use
  Company Number: US-GLAXOSMITHKLINE-US2021GSK159075

PATIENT
  Sex: Male

DRUGS (4)
  1. ZANTAC [Suspect]
     Active Substance: RANITIDINE HYDROCHLORIDE
     Indication: FLATULENCE
     Dosage: UNKNOWN AT THIS TIME BOTH
     Route: 065
     Dates: start: 201501, end: 202003
  2. ZANTAC [Suspect]
     Active Substance: RANITIDINE HYDROCHLORIDE
     Indication: FLATULENCE
     Dosage: UNKNOWN AT THIS TIME BOTH
     Route: 065
     Dates: start: 201501, end: 202003
  3. RANITIDINE CAPSULE [Suspect]
     Active Substance: RANITIDINE
     Indication: FLATULENCE
     Dosage: UNKNOWN AT THIS TIME BOTH
     Route: 065
     Dates: start: 201501, end: 202003
  4. ZANTAC [Suspect]
     Active Substance: RANITIDINE HYDROCHLORIDE
     Indication: FLATULENCE
     Dosage: UNKNOWN AT THIS TIME BOTH
     Route: 065
     Dates: start: 201501, end: 202003

REACTIONS (1)
  - Gastric cancer [Fatal]
